FAERS Safety Report 7859626-5 (Version None)
Quarter: 2011Q4

REPORT INFORMATION
  Report Type: 
  Country: None (occurrence: None)
  Receive Date: 20111027
  Receipt Date: 20111012
  Transmission Date: 20120403
  Serious: No
  Sender: FDA-Public Use
  Company Number: US-BAYER-2011-099624

PATIENT
  Sex: Female

DRUGS (1)
  1. YAZ [Suspect]
     Dosage: UNK UNK, QD
     Route: 048
     Dates: start: 20090101, end: 20090101

REACTIONS (3)
  - INJURY [None]
  - PAIN [None]
  - ANXIETY [None]
